FAERS Safety Report 7153129-1 (Version None)
Quarter: 2010Q4

REPORT INFORMATION
  Report Type: 
  Country: None (occurrence: None)
  Receive Date: 20101213
  Receipt Date: 20101201
  Transmission Date: 20110411
  Serious: Yes (Disabling, Other)
  Sender: FDA-Public Use
  Company Number: JP-ALLERGAN-1014682US

PATIENT
  Age: 87 Year
  Sex: Male

DRUGS (5)
  1. LUMIGAN [Suspect]
     Indication: GLAUCOMA
     Dosage: 1 GTT, QD
     Route: 047
     Dates: start: 20091101, end: 20091217
  2. FLUOROMETHOLONE 0.1% EYEDROPS [Concomitant]
     Indication: PRODUCT USED FOR UNKNOWN INDICATION
     Dosage: UNK
     Dates: start: 20090626, end: 20091218
  3. MOXIFLOXACIN HYDROCHLORIDE [Concomitant]
     Indication: PRODUCT USED FOR UNKNOWN INDICATION
     Dosage: UNK
     Dates: start: 20091008, end: 20091218
  4. TIMOLOL MALEATE [Concomitant]
     Indication: PRODUCT USED FOR UNKNOWN INDICATION
     Dosage: UNK
     Dates: start: 20090701, end: 20100219
  5. DORZOLAMIDE HYDROCHLORIDE [Concomitant]
     Indication: PRODUCT USED FOR UNKNOWN INDICATION
     Dosage: UNK
     Dates: start: 20090718, end: 20100219

REACTIONS (3)
  - DEVICE COLOUR ISSUE [None]
  - INTRAOCULAR PRESSURE INCREASED [None]
  - IRITIS [None]
